FAERS Safety Report 6034410-6 (Version None)
Quarter: 2009Q1

REPORT INFORMATION
  Report Type: 
  Country: None (occurrence: None)
  Receive Date: 20090112
  Receipt Date: 20090109
  Transmission Date: 20090719
  Serious: Yes (Other)
  Sender: FDA-Public Use
  Company Number: A0762846A

PATIENT
  Age: 60 Year
  Sex: Female

DRUGS (8)
  1. ADVAIR DISKUS 250/50 [Suspect]
     Indication: BRONCHITIS
     Dosage: 1PUFF TWICE PER DAY
     Route: 055
     Dates: start: 20080601, end: 20090101
  2. AMBIEN [Concomitant]
  3. PHENERGAN HCL [Concomitant]
  4. PRAVASTATIN [Concomitant]
  5. PREVACID [Concomitant]
  6. HYDROCODONE [Concomitant]
  7. TEMAZEPAM [Concomitant]
  8. DIAZEPAM [Concomitant]

REACTIONS (9)
  - ARTHRALGIA [None]
  - BACK PAIN [None]
  - DRUG INEFFECTIVE [None]
  - MUSCLE SPASMS [None]
  - MYALGIA [None]
  - NAUSEA [None]
  - OROPHARYNGEAL PAIN [None]
  - PNEUMONIA [None]
  - PRURITUS [None]
